FAERS Safety Report 12126643 (Version 1)
Quarter: 2016Q1

REPORT INFORMATION
  Report Type: Spontaneous
  Country: DE (occurrence: DE)
  Receive Date: 20160229
  Receipt Date: 20160229
  Transmission Date: 20160526
  Serious: Yes (Other)
  Sender: FDA-Public Use
  Company Number: DE-GLAXOSMITHKLINE-DE2016GSK027066

PATIENT
  Age: 20 Year
  Sex: Male

DRUGS (2)
  1. ELONTRIL [Suspect]
     Active Substance: BUPROPION HYDROCHLORIDE
     Indication: STRESS
  2. ELONTRIL [Suspect]
     Active Substance: BUPROPION HYDROCHLORIDE
     Indication: DEPRESSION
     Dosage: UNK
     Dates: start: 20160216

REACTIONS (3)
  - Anxiety [Recovered/Resolved]
  - Illusion [Unknown]
  - Suicide attempt [Unknown]

NARRATIVE: CASE EVENT DATE: 201602
